FAERS Safety Report 9849611 (Version 5)
Quarter: 2014Q2

REPORT INFORMATION
  Report Type: Spontaneous
  Country: BE (occurrence: BE)
  Receive Date: 20140128
  Receipt Date: 20140424
  Transmission Date: 20141212
  Serious: Yes (Hospitalization, Other)
  Sender: FDA-Public Use
  Company Number: BE-MERCK-1305BEL006716

PATIENT
  Age: 51 Year
  Sex: Male
  Weight: 109 kg

DRUGS (9)
  1. REBETOL [Suspect]
     Indication: HEPATITIS C
     Dosage: TOTAL DAILY DOSE 1400MG, BID (3 CAPS. IN THE MORNING AND 4 CAPS. IN THE EVENING)
     Route: 048
     Dates: start: 20130504, end: 20130508
  2. REBETOL [Suspect]
     Dosage: TOTAL DAILY DOSE 1200MG, BID
     Route: 048
     Dates: start: 20130509, end: 20130915
  3. REBETOL [Suspect]
     Dosage: TOTAL DAILY DOSE 800 MG, BID
     Route: 048
     Dates: start: 20130916
  4. REBETOL [Suspect]
     Dosage: UNK
     Dates: start: 200907, end: 201007
  5. PEGINTRON [Suspect]
     Indication: HEPATITIS C
     Dosage: 150 MICROGRAM, QW
     Dates: start: 20130504
  6. PEGINTRON [Suspect]
     Dosage: UNK
     Dates: start: 200907, end: 201007
  7. VICTRELIS [Suspect]
     Indication: HEPATITIS C
     Dosage: TOTAL DAILY DOSE 2400 MG, TID
     Route: 048
     Dates: start: 20130617
  8. TAMSULOSIN HYDROCHLORIDE [Concomitant]
     Dosage: 0.4 MG, QD
     Route: 048
     Dates: end: 20140217
  9. L-THYROXIN [Concomitant]
     Indication: HYPOTHYROIDISM
     Dosage: 200 MICROGRAM, QD
     Route: 048
     Dates: start: 201011

REACTIONS (10)
  - Syncope [Recovering/Resolving]
  - Transfusion [Recovered/Resolved]
  - Nasopharyngitis [Recovered/Resolved]
  - Cough [Unknown]
  - Dysgeusia [Not Recovered/Not Resolved]
  - Anaemia [Not Recovered/Not Resolved]
  - Asthenia [Not Recovered/Not Resolved]
  - Overdose [Recovered/Resolved]
  - Headache [Unknown]
  - Neck pain [Unknown]
